FAERS Safety Report 4748797-5 (Version None)
Quarter: 2005Q3

REPORT INFORMATION
  Report Type: 
  Country: None (occurrence: None)
  Receive Date: 20050819
  Receipt Date: 20050808
  Transmission Date: 20060218
  Serious: Yes (Other)
  Sender: FDA-Public Use
  Company Number: PHBS2005BR11597

PATIENT
  Age: 56 Year
  Sex: Female

DRUGS (2)
  1. ZELMAC [Suspect]
     Indication: CONSTIPATION
     Dosage: UNK, UNK
     Route: 048
     Dates: start: 20050303
  2. ZELMAC [Suspect]
     Dosage: UNK, UNK
     Route: 048
     Dates: end: 20050310

REACTIONS (2)
  - DIARRHOEA [None]
  - FLATULENCE [None]
